FAERS Safety Report 6866511-4 (Version None)
Quarter: 2010Q3

REPORT INFORMATION
  Report Type: 
  Country: None (occurrence: None)
  Receive Date: 20100722
  Receipt Date: 20100712
  Transmission Date: 20110219
  Serious: Yes (Disabling, Other)
  Sender: FDA-Public Use
  Company Number: US-CELGENEUS-163-22393-10050615

PATIENT
  Sex: Female

DRUGS (3)
  1. ISTODAX [Suspect]
     Route: 051
     Dates: start: 20100423
  2. ISTODAX [Suspect]
     Route: 051
     Dates: start: 20100601
  3. DOXYCYCLINE [Concomitant]
     Indication: CELLULITIS
     Route: 048
     Dates: start: 20100421, end: 20100430

REACTIONS (2)
  - RASH ERYTHEMATOUS [None]
  - SKIN EXFOLIATION [None]
